FAERS Safety Report 19036936 (Version 1)
Quarter: 2021Q1

REPORT INFORMATION
  Report Type: Spontaneous
  Country: US (occurrence: US)
  Receive Date: 20210322
  Receipt Date: 20210322
  Transmission Date: 20210420
  Serious: No
  Sender: FDA-Public Use
  Company Number: US-AMGEN-USASP2021041475

PATIENT
  Age: 83 Year
  Sex: Female

DRUGS (4)
  1. DUPIXENT [Concomitant]
     Active Substance: DUPILUMAB
     Indication: DERMATITIS ATOPIC
     Dosage: 600 MILLIGRAM ONCE
     Route: 058
     Dates: start: 20200320, end: 20200320
  2. PROLIA [Suspect]
     Active Substance: DENOSUMAB
     Indication: HIP FRACTURE
     Dosage: UNK UNK, Q6MO
     Route: 065
     Dates: start: 202008
  3. CLOBETASOL [Concomitant]
     Active Substance: CLOBETASOL
  4. DUPIXENT [Concomitant]
     Active Substance: DUPILUMAB
     Indication: ECZEMA
     Dosage: 300 MILLIGRAM, Q2WK
     Route: 058
     Dates: start: 20200803

REACTIONS (6)
  - Pain [Unknown]
  - Off label use [Unknown]
  - Gait disturbance [Unknown]
  - Asthenia [Unknown]
  - Skin disorder [Recovered/Resolved]
  - Illness [Unknown]

NARRATIVE: CASE EVENT DATE: 2020
